FAERS Safety Report 9357434 (Version 2)
Quarter: 2013Q2

REPORT INFORMATION
  Report Type: Spontaneous
  Country: US (occurrence: US)
  Receive Date: 20130620
  Receipt Date: 20130625
  Transmission Date: 20140414
  Serious: Yes (Hospitalization, Other)
  Sender: FDA-Public Use
  Company Number: US-SANOFI-AVENTIS-2013SA061211

PATIENT
  Age: 68 Year
  Sex: Male

DRUGS (2)
  1. LANTUS SOLOSTAR [Suspect]
     Indication: DIABETES MELLITUS
     Route: 051
  2. SOLOSTAR [Suspect]
     Indication: DIABETES MELLITUS

REACTIONS (4)
  - Hip fracture [Unknown]
  - Balance disorder [Unknown]
  - Fall [Unknown]
  - Hypertension [Unknown]
